FAERS Safety Report 25457679 (Version 2)
Quarter: 2025Q2

REPORT INFORMATION
  Report Type: Spontaneous
  Country: FR (occurrence: FR)
  Receive Date: 20250619
  Receipt Date: 20250619
  Transmission Date: 20250716
  Serious: Yes (Other)
  Sender: LUNDBECK
  Company Number: None

PATIENT
  Age: 37 Year
  Sex: Male

DRUGS (1)
  1. VYEPTI [Suspect]
     Active Substance: EPTINEZUMAB-JJMR
     Indication: Migraine prophylaxis
     Dosage: UNE PERFUSION TOUTES LES 12 SEMAINES
     Route: 041
     Dates: start: 202406

REACTIONS (2)
  - Infertility [Not Recovered/Not Resolved]
  - Total sperm count decreased [Not Recovered/Not Resolved]

NARRATIVE: CASE EVENT DATE: 20241201
